FAERS Safety Report 6614225-8 (Version None)
Quarter: 2010Q1

REPORT INFORMATION
  Report Type: 
  Country: None (occurrence: None)
  Receive Date: 20100304
  Receipt Date: 20100126
  Transmission Date: 20100710
  Serious: Yes (Life-Threatening, Hospitalization)
  Sender: FDA-Public Use
  Company Number: JP-PFIZER INC-2009193455

PATIENT
  Age: 69 Year
  Sex: Female
  Weight: 43.6 kg

DRUGS (4)
  1. SUNITINIB MALATE [Suspect]
     Indication: RENAL CELL CARCINOMA
     Dosage: 25 MG, 1X/DAY
     Route: 048
     Dates: start: 20090115
  2. LASIX [Concomitant]
     Dosage: UNK
  3. THYRADIN-S [Concomitant]
     Dosage: UNK
     Route: 048
  4. TAKEPRON [Concomitant]
     Dosage: UNK
     Route: 048

REACTIONS (3)
  - HYPERKALAEMIA [None]
  - OEDEMA [None]
  - PLATELET COUNT DECREASED [None]
